FAERS Safety Report 15966851 (Version 1)
Quarter: 2019Q1

REPORT INFORMATION
  Report Type: Spontaneous
  Country: HU (occurrence: HU)
  Receive Date: 20190215
  Receipt Date: 20190215
  Transmission Date: 20190418
  Serious: Yes (Hospitalization, Other)
  Sender: FDA-Public Use
  Company Number: HU-AMGEN-HUNSP2019020808

PATIENT
  Age: 45 Year
  Sex: Female

DRUGS (3)
  1. ALPHA D3 [Concomitant]
     Active Substance: ALFACALCIDOL
     Indication: HYPERPARATHYROIDISM SECONDARY
     Dosage: 1 MUG, TID
  2. CALCIUM [Concomitant]
     Active Substance: CALCIUM
     Dosage: 500 MG, QID
  3. MIMPARA [Suspect]
     Active Substance: CINACALCET HYDROCHLORIDE
     Indication: HYPERPARATHYROIDISM SECONDARY
     Dosage: UNK
     Route: 065
     Dates: start: 2013

REACTIONS (4)
  - Loss of consciousness [Recovering/Resolving]
  - Drug ineffective [Unknown]
  - Seizure [Recovering/Resolving]
  - Asthenia [Unknown]
